FAERS Safety Report 6272117-0 (Version None)
Quarter: 2009Q3

REPORT INFORMATION
  Report Type: 
  Country: None (occurrence: None)
  Receive Date: 20090715
  Receipt Date: 20090703
  Transmission Date: 20100115
  Serious: Yes (Death)
  Sender: FDA-Public Use
  Company Number: 2009-02510

PATIENT
  Age: 57 Year
  Sex: Male
  Weight: 99.2 kg

DRUGS (7)
  1. VELCADE [Suspect]
     Indication: CHRONIC LYMPHOCYTIC LEUKAEMIA
     Dosage: 2.3 MG, INTRAVENOUS
     Route: 042
     Dates: start: 20090424, end: 20090508
  2. CARMUSTINE [Suspect]
     Indication: CHRONIC LYMPHOCYTIC LEUKAEMIA
  3. ETOPOSIDE [Suspect]
     Indication: CHRONIC LYMPHOCYTIC LEUKAEMIA
  4. CYTARABINE [Suspect]
     Indication: CHRONIC LYMPHOCYTIC LEUKAEMIA
  5. MELPHALAN HYDROCHLORIDE [Suspect]
     Indication: CHRONIC LYMPHOCYTIC LEUKAEMIA
  6. RITUXIMAB(RITUXIMAB) INJECTIO [Suspect]
     Indication: CHRONIC LYMPHOCYTIC LEUKAEMIA
  7. THYMOGLOBULIN [Suspect]
     Indication: CHRONIC LYMPHOCYTIC LEUKAEMIA

REACTIONS (27)
  - ACUTE GRAFT VERSUS HOST DISEASE IN INTESTINE [None]
  - ACUTE PRERENAL FAILURE [None]
  - ATELECTASIS [None]
  - BLOOD ALBUMIN DECREASED [None]
  - BODY TEMPERATURE DECREASED [None]
  - CEREBRAL INFARCTION [None]
  - CHOLESTASIS [None]
  - COMMUNICATION DISORDER [None]
  - DEHYDRATION [None]
  - DRUG INEFFECTIVE [None]
  - ELECTROCARDIOGRAM ST SEGMENT DEPRESSION [None]
  - ENGRAFTMENT SYNDROME [None]
  - GENERAL PHYSICAL HEALTH DETERIORATION [None]
  - HAEMODIALYSIS [None]
  - HEART RATE DECREASED [None]
  - HEPATIC FAILURE [None]
  - HYPOTENSION [None]
  - INTESTINAL OBSTRUCTION [None]
  - LUNG CONSOLIDATION [None]
  - MENTAL STATUS CHANGES [None]
  - PANCYTOPENIA [None]
  - PSEUDOMONAS INFECTION [None]
  - RENAL INJURY [None]
  - STEM CELL TRANSPLANT [None]
  - TACHYARRHYTHMIA [None]
  - TACHYCARDIA [None]
  - THROMBOTIC THROMBOCYTOPENIC PURPURA [None]
